FAERS Safety Report 6116233-2 (Version None)
Quarter: 2009Q1

REPORT INFORMATION
  Report Type: 
  Country: None (occurrence: None)
  Receive Date: 20090314
  Receipt Date: 20081202
  Transmission Date: 20090719
  Serious: No
  Sender: FDA-Public Use
  Company Number: US-ABBOTT-08P-163-0490999-00

PATIENT
  Sex: Female
  Weight: 93.524 kg

DRUGS (3)
  1. HUMIRA [Suspect]
     Indication: CROHN'S DISEASE
     Route: 058
     Dates: start: 20081006, end: 20081006
  2. HUMIRA [Suspect]
     Route: 058
     Dates: start: 20081020, end: 20081020
  3. HUMIRA [Suspect]
     Route: 058
     Dates: start: 20081103

REACTIONS (4)
  - INJECTION SITE ERYTHEMA [None]
  - INJECTION SITE HAEMATOMA [None]
  - INJECTION SITE HAEMORRHAGE [None]
  - INJECTION SITE SWELLING [None]
